FAERS Safety Report 6565476-2 (Version None)
Quarter: 2010Q1

REPORT INFORMATION
  Report Type: 
  Country: None (occurrence: None)
  Receive Date: 20100201
  Receipt Date: 20100122
  Transmission Date: 20100710
  Serious: Yes (Disabling, Other)
  Sender: FDA-Public Use
  Company Number: US-ROCHE-657586

PATIENT
  Sex: Female
  Weight: 43.1 kg

DRUGS (3)
  1. CAPECITABINE [Suspect]
     Dosage: 1 TABLET IN MORNING AND 1 TABLET IN EVENING;2 WEEKS ON AND 1 WEEK OFF
     Route: 048
     Dates: start: 20090529, end: 20100122
  2. BEVACIZUMAB [Suspect]
     Indication: DRUG USE FOR UNKNOWN INDICATION
     Route: 065
  3. OXALIPLATIN [Suspect]
     Indication: DRUG USE FOR UNKNOWN INDICATION
     Dosage: DRUG DISCONTINUED IN NOVEMBER
     Route: 065

REACTIONS (5)
  - DEAFNESS [None]
  - INFECTED SKIN ULCER [None]
  - NEUROPATHY PERIPHERAL [None]
  - SKIN ULCER [None]
  - TINNITUS [None]
